FAERS Safety Report 16175009 (Version 1)
Quarter: 2019Q2

REPORT INFORMATION
  Report Type: Spontaneous
  Country: US (occurrence: US)
  Receive Date: 20190409
  Receipt Date: 20190409
  Transmission Date: 20190711
  Serious: No
  Sender: FDA-Public Use
  Company Number: US-PERRIGO-18US004692

PATIENT
  Sex: Female

DRUGS (2)
  1. ACETAMINOPHEN. [Suspect]
     Active Substance: ACETAMINOPHEN
     Indication: ARTHRITIS
     Dosage: 1300 MG, SINGLE
     Route: 048
     Dates: start: 20180415, end: 20180415
  2. ACETAMINOPHEN. [Suspect]
     Active Substance: ACETAMINOPHEN
     Indication: EYE PAIN
     Dosage: 650 MG, TWICE IN 2.5 HOURS; 1/2 TABLET, SINGLE
     Route: 048
     Dates: start: 20180426, end: 20180426

REACTIONS (4)
  - Therapeutic product effect variable [Unknown]
  - Expired product administered [Recovered/Resolved]
  - Underdose [Unknown]
  - Wrong technique in product usage process [Recovered/Resolved]

NARRATIVE: CASE EVENT DATE: 20180415
